FAERS Safety Report 15881548 (Version 2)
Quarter: 2020Q1

REPORT INFORMATION
  Report Type: Spontaneous
  Country: US (occurrence: US)
  Receive Date: 20190128
  Receipt Date: 20200128
  Transmission Date: 20200409
  Serious: Yes (Hospitalization)
  Sender: FDA-Public Use
  Company Number: US-SA-2019SA018962

PATIENT
  Age: 61 Year
  Sex: Female

DRUGS (2)
  1. LANTUS SOLOSTAR [Suspect]
     Active Substance: INSULIN GLARGINE
     Dosage: 55 IU, AFTER SUPPER
     Route: 065
  2. LANTUS SOLOSTAR [Suspect]
     Active Substance: INSULIN GLARGINE
     Indication: TYPE 2 DIABETES MELLITUS
     Dosage: 50 IU, BID
     Route: 065

REACTIONS (5)
  - Inappropriate schedule of product administration [Unknown]
  - Multiple use of single-use product [Unknown]
  - Blood glucose increased [Unknown]
  - Hospitalisation [Unknown]
  - Visual impairment [Unknown]
